FAERS Safety Report 20901093 (Version 2)
Quarter: 2022Q3

REPORT INFORMATION
  Report Type: Report from Study
  Country: US (occurrence: US)
  Receive Date: 20220601
  Receipt Date: 20220711
  Transmission Date: 20221027
  Serious: No
  Sender: FDA-Public Use
  Company Number: US-SAGE-2022SAGE000043

PATIENT
  Age: 35 Year
  Sex: Female

DRUGS (9)
  1. ZULRESSO [Suspect]
     Active Substance: BREXANOLONE
     Indication: Perinatal depression
     Dosage: 30 MCG/KG/HR, FIRST BAG
     Route: 042
     Dates: start: 20220221, end: 20220221
  2. ZULRESSO [Suspect]
     Active Substance: BREXANOLONE
     Dosage: 60 MCG/KG/HR
     Route: 042
     Dates: start: 20220221, end: 20220222
  3. ZULRESSO [Suspect]
     Active Substance: BREXANOLONE
     Dosage: 60 MCG/KG/HR, NEW BAG STARTED
     Route: 042
     Dates: start: 20220222, end: 20220222
  4. ZULRESSO [Suspect]
     Active Substance: BREXANOLONE
     Dosage: 90 MCG/KG/HR, NEW BAG STARTED
     Route: 042
     Dates: start: 20220222, end: 20220222
  5. ZULRESSO [Suspect]
     Active Substance: BREXANOLONE
     Dosage: 90 MCG/KG/HR, NEW BAG STARTED
     Route: 042
     Dates: start: 20220222, end: 20220223
  6. ZULRESSO [Suspect]
     Active Substance: BREXANOLONE
     Dosage: 90 MCG/KG/HR, NEW BAG STARTED
     Route: 042
     Dates: start: 20220223, end: 20220223
  7. ZULRESSO [Suspect]
     Active Substance: BREXANOLONE
     Dosage: 90 MCG/KG/HR, NEW BAG
     Route: 042
     Dates: start: 20220223, end: 20220223
  8. ZULRESSO [Suspect]
     Active Substance: BREXANOLONE
     Dosage: 60 MCG/KG/HR
     Route: 042
     Dates: start: 20220223, end: 20220223
  9. ZULRESSO [Suspect]
     Active Substance: BREXANOLONE
     Dosage: 30 MCG/KG/HR
     Route: 042
     Dates: start: 20220223, end: 20220224

REACTIONS (1)
  - Drug monitoring procedure incorrectly performed [Unknown]

NARRATIVE: CASE EVENT DATE: 20220222
